FAERS Safety Report 6665034-5 (Version None)
Quarter: 2010Q2

REPORT INFORMATION
  Report Type: 
  Country: None (occurrence: None)
  Receive Date: 20100402
  Receipt Date: 20100325
  Transmission Date: 20101027
  Serious: No
  Sender: FDA-Public Use
  Company Number: US-BIOGENIDEC-2010BI010013

PATIENT
  Sex: Female

DRUGS (1)
  1. AVONEX [Suspect]
     Indication: MULTIPLE SCLEROSIS
     Route: 030

REACTIONS (7)
  - COLONIC POLYP [None]
  - COUGH [None]
  - DIABETES MELLITUS [None]
  - EMOTIONAL DISTRESS [None]
  - INCREASED UPPER AIRWAY SECRETION [None]
  - INJECTION SITE ERYTHEMA [None]
  - MEMORY IMPAIRMENT [None]
